FAERS Safety Report 20686863 (Version 1)
Quarter: 2022Q2

REPORT INFORMATION
  Report Type: Spontaneous
  Country: US (occurrence: US)
  Receive Date: 20220407
  Receipt Date: 20220407
  Transmission Date: 20220720
  Serious: Yes (Other)
  Sender: FDA-Public Use
  Company Number: US-SA-SAC20220405000991

PATIENT
  Age: 36 Year
  Sex: Female

DRUGS (1)
  1. ZANTAC [Suspect]
     Active Substance: RANITIDINE HYDROCHLORIDE
     Indication: Dyspepsia
     Dosage: 300 MG, QW
     Dates: start: 201110, end: 201812

REACTIONS (3)
  - Invasive ductal breast carcinoma [Unknown]
  - Lymphadenopathy [Unknown]
  - Pulmonary radiation injury [Unknown]

NARRATIVE: CASE EVENT DATE: 20190625
